FAERS Safety Report 5635131-1 (Version None)
Quarter: 2008Q1

REPORT INFORMATION
  Report Type: 
  Country: None (occurrence: None)
  Receive Date: 20080221
  Receipt Date: 20080221
  Transmission Date: 20080703
  Serious: Yes (Hospitalization)
  Sender: FDA-Public Use
  Company Number: None

PATIENT
  Sex: Male
  Weight: 71.82 kg

DRUGS (1)
  1. CISPLATIN [Suspect]
     Dosage: 198 MG
     Dates: end: 20080129

REACTIONS (7)
  - CHILLS [None]
  - ERYTHEMA [None]
  - FEBRILE NEUTROPENIA [None]
  - MUCOSAL INFLAMMATION [None]
  - PHARYNGEAL DISORDER [None]
  - STOMATITIS [None]
  - TONGUE DISCOLOURATION [None]
